FAERS Safety Report 9743196 (Version 2)
Quarter: 2015Q3

REPORT INFORMATION
  Report Type: Spontaneous
  Country: US (occurrence: US)
  Receive Date: 20131210
  Receipt Date: 20150804
  Transmission Date: 20151125
  Serious: No
  Sender: FDA-Public Use
  Company Number: US-GILEAD-2009-0024964

PATIENT
  Age: 48 Year
  Sex: Female
  Weight: 56.7 kg

DRUGS (10)
  1. LEVOTHYROXINE. [Concomitant]
     Active Substance: LEVOTHYROXINE
  2. METHOTREXATE [Concomitant]
     Active Substance: METHOTREXATE
  3. NEXIUM [Concomitant]
     Active Substance: ESOMEPRAZOLE MAGNESIUM
  4. COUMADIN [Concomitant]
     Active Substance: WARFARIN SODIUM
  5. PREDNISONE. [Concomitant]
     Active Substance: PREDNISONE
  6. PLAQUENIL [Concomitant]
     Active Substance: HYDROXYCHLOROQUINE SULFATE
  7. LETAIRIS [Suspect]
     Active Substance: AMBRISENTAN
     Indication: PULMONARY ARTERIAL HYPERTENSION
     Route: 048
     Dates: start: 20090425
  8. TOPROL XL [Concomitant]
     Active Substance: METOPROLOL SUCCINATE
  9. DIGOXIN. [Concomitant]
     Active Substance: DIGOXIN
  10. LASIX [Concomitant]
     Active Substance: FUROSEMIDE

REACTIONS (1)
  - Unevaluable event [Unknown]
